FAERS Safety Report 10445856 (Version 3)
Quarter: 2014Q4

REPORT INFORMATION
  Report Type: Report from Study
  Country: US (occurrence: US)
  Receive Date: 20140910
  Receipt Date: 20141203
  Transmission Date: 20150528
  Serious: Yes (Other)
  Sender: FDA-Public Use
  Company Number: US-SA-2014SA116494

PATIENT
  Age: 38 Year
  Sex: Female

DRUGS (1)
  1. AUBAGIO [Suspect]
     Active Substance: TERIFLUNOMIDE
     Indication: MULTIPLE SCLEROSIS
     Route: 048
     Dates: start: 20140820

REACTIONS (10)
  - Laceration [Unknown]
  - Fatigue [Recovering/Resolving]
  - Insomnia [Unknown]
  - Neuropathy peripheral [Unknown]
  - Fall [Unknown]
  - Intervertebral disc protrusion [Unknown]
  - Asthenia [Unknown]
  - Pain [Unknown]
  - Influenza like illness [Unknown]
  - Fall [Unknown]

NARRATIVE: CASE EVENT DATE: 201408
